FAERS Safety Report 6433389-2 (Version None)
Quarter: 2009Q4

REPORT INFORMATION
  Report Type: 
  Country: None (occurrence: None)
  Receive Date: 20091106
  Receipt Date: 20091106
  Transmission Date: 20100525
  Serious: Yes (Other)
  Sender: FDA-Public Use
  Company Number: None

PATIENT
  Sex: Female

DRUGS (1)
  1. PROAIR HFA [Suspect]
     Indication: ASTHMA
     Dosage: 90 MCG/ACTUATION 2 PUFFS BID INHAL
     Route: 055
     Dates: start: 20090101, end: 20091104

REACTIONS (5)
  - ASTHMA [None]
  - CONDITION AGGRAVATED [None]
  - DEVICE INEFFECTIVE [None]
  - DRUG INEFFECTIVE [None]
  - THROAT TIGHTNESS [None]
